FAERS Safety Report 8548744-4 (Version None)
Quarter: 2012Q3

REPORT INFORMATION
  Report Type: 
  Country: None (occurrence: None)
  Receive Date: 20120730
  Receipt Date: 20120724
  Transmission Date: 20120928
  Serious: Yes (Hospitalization)
  Sender: FDA-Public Use
  Company Number: PHHY2012JP056198

PATIENT
  Age: 82 Year
  Sex: Female

DRUGS (3)
  1. KREMEZIN [Concomitant]
     Dosage: 6 G, UNK
     Route: 048
     Dates: start: 20081001
  2. RASILEZ [Suspect]
     Indication: HYPERTENSION
     Dosage: 150 MG, UNK
     Route: 048
     Dates: start: 20101020
  3. SODIUM POLYSTYRENE SULFONATE [Concomitant]
     Dosage: 75 G, UNK
     Route: 048
     Dates: start: 20120404

REACTIONS (1)
  - HAEMATOCHEZIA [None]
